FAERS Safety Report 4379972-X (Version None)
Quarter: 2004Q2

REPORT INFORMATION
  Report Type: 
  Country: None (occurrence: None)
  Receive Date: 20040614
  Receipt Date: 20040601
  Transmission Date: 20050107
  Serious: Yes (Disabling)
  Sender: FDA-Public Use
  Company Number: 2004AP02336

PATIENT
  Age: 76 Year
  Sex: Male
  Weight: 74 kg

DRUGS (15)
  1. MEROPENEM [Suspect]
     Indication: PNEUMONIA
     Dosage: 0.5 G BID IVD
     Route: 041
     Dates: start: 20040123, end: 20040125
  2. MEROPENEM [Suspect]
     Indication: PNEUMONIA
     Dosage: 0.5 G BID IVD
     Route: 041
     Dates: start: 20040119, end: 20040121
  3. MEROPENEM [Suspect]
     Indication: PNEUMONIA
     Dosage: 0.5 G DAILY IVD
     Route: 041
     Dates: start: 20040122, end: 20040122
  4. MEROPENEM [Suspect]
     Indication: PNEUMONIA
     Dosage: 0.5 G DAILY IVD
     Route: 041
     Dates: start: 20040126, end: 20040126
  5. NEOPHYLLINE [Suspect]
     Indication: BRONCHITIS
     Dosage: 250 MG DAILY IV
     Route: 042
     Dates: start: 20040114, end: 20040121
  6. MODACIN [Suspect]
     Indication: PNEUMONIA
     Dosage: 1 G BID IV
     Route: 042
     Dates: start: 20040114, end: 20040118
  7. CLINDAMYCIN HCL [Suspect]
     Indication: PNEUMONIA
     Dosage: 0.6 G BID IVD
     Route: 041
     Dates: start: 20040119, end: 20040121
  8. DIFLUCAN [Suspect]
     Indication: PULMONARY MYCOSIS
     Dosage: 200 MG DAILY IV
     Route: 042
     Dates: start: 20040120, end: 20040123
  9. CLARITH [Suspect]
     Dosage: 200 MG BID PO
     Route: 048
     Dates: start: 20040122, end: 20040128
  10. MINOMYCIN [Concomitant]
  11. SOLU-MDROL [Concomitant]
  12. VENOGLOBULIN [Concomitant]
  13. CLINDAMYCIN HCL [Concomitant]
  14. BACTRIM [Concomitant]
  15. GASTER D [Concomitant]

REACTIONS (3)
  - DYSGEUSIA [None]
  - PAROSMIA [None]
  - VIRAL INFECTION [None]
